FAERS Safety Report 24993707 (Version 3)
Quarter: 2025Q2

REPORT INFORMATION
  Report Type: Spontaneous
  Country: JP (occurrence: JP)
  Receive Date: 20250221
  Receipt Date: 20250521
  Transmission Date: 20250717
  Serious: Yes (Death, Other)
  Sender: GILEAD
  Company Number: JP-GILEAD-2025-0704644

PATIENT
  Age: 7 Decade
  Sex: Female

DRUGS (12)
  1. TRODELVY [Suspect]
     Active Substance: SACITUZUMAB GOVITECAN-HZIY
     Indication: Triple negative breast cancer
     Route: 065
     Dates: start: 20241122, end: 20250110
  2. FEXOFENADINE HYDROCHLORIDE [Concomitant]
     Active Substance: FEXOFENADINE HYDROCHLORIDE
  3. FERRIC AMMONIUM CITRATE [Concomitant]
     Active Substance: FERRIC AMMONIUM CITRATE
  4. HERBALS [Concomitant]
     Active Substance: HERBALS
  5. ALFAROL [Concomitant]
     Active Substance: ALFACALCIDOL
  6. SYMPROIC [Concomitant]
     Active Substance: NALDEMEDINE TOSYLATE
  7. VONOPRAZAN FUMARATE [Concomitant]
     Active Substance: VONOPRAZAN FUMARATE
  8. LOXOPROFEN [Concomitant]
     Active Substance: LOXOPROFEN
  9. MAGNESIUM OXIDE [Concomitant]
     Active Substance: MAGNESIUM OXIDE
  10. AZOSEMIDE [Concomitant]
     Active Substance: AZOSEMIDE
  11. SAMSCA [Concomitant]
     Active Substance: TOLVAPTAN
  12. FENTANYL [Concomitant]
     Active Substance: FENTANYL

REACTIONS (4)
  - Triple negative breast cancer [Fatal]
  - Neutrophil count decreased [Unknown]
  - White blood cell count decreased [Unknown]
  - Anaemia [Unknown]
